FAERS Safety Report 26123769 (Version 1)
Quarter: 2025Q4

REPORT INFORMATION
  Report Type: Spontaneous
  Country: US (occurrence: US)
  Receive Date: 20251205
  Receipt Date: 20251205
  Transmission Date: 20260118
  Serious: No
  Sender: BRISTOL-MYERS SQUIBB COMPANY
  Company Number: US-BRISTOL-MYERS SQUIBB COMPANY-2025-163282

PATIENT
  Age: 70 Year
  Sex: Female

DRUGS (1)
  1. REVLIMID [Suspect]
     Active Substance: LENALIDOMIDE
     Indication: Plasma cell myeloma
     Dosage: TAKE 1 WHOLE CAPSULE BY MOUTH W/WATER AT THE SAME TIME DAILY FOR 21 DAYS OF A 28
     Route: 048

REACTIONS (4)
  - Bowel movement irregularity [Unknown]
  - Ageusia [Unknown]
  - Fatigue [Unknown]
  - Drug intolerance [Unknown]
